FAERS Safety Report 5093342-0 (Version None)
Quarter: 2006Q3

REPORT INFORMATION
  Report Type: 
  Country: None (occurrence: None)
  Receive Date: 20060828
  Receipt Date: 20060816
  Transmission Date: 20061208
  Serious: Yes (Hospitalization)
  Sender: FDA-Public Use
  Company Number: 2006100784

PATIENT
  Age: 84 Year
  Sex: Female

DRUGS (4)
  1. SOLU-MEDROL [Suspect]
     Indication: DRUG USE FOR UNKNOWN INDICATION
  2. ATENOLOL [Suspect]
     Indication: DRUG USE FOR UNKNOWN INDICATION
     Dosage: 25 MG (FREQUENCY: QD), ORAL
     Route: 048
  3. ATENOLOL [Suspect]
     Indication: DRUG USE FOR UNKNOWN INDICATION
     Dosage: 25 MG (FREQUENCY: QD), ORAL
     Route: 048
  4. ALDACTAZINE (SPIRONOLACTONE, ALTIZIDE) [Suspect]
     Indication: DRUG USE FOR UNKNOWN INDICATION
     Dosage: QD, ORAL
     Route: 048

REACTIONS (4)
  - FACIAL PALSY [None]
  - HEMIPARESIS [None]
  - HYPERGLYCAEMIA [None]
  - HYPOTENSION [None]
